FAERS Safety Report 7901792-7 (Version None)
Quarter: 2011Q4

REPORT INFORMATION
  Report Type: 
  Country: None (occurrence: None)
  Receive Date: 20111108
  Receipt Date: 20111104
  Transmission Date: 20120403
  Serious: No
  Sender: FDA-Public Use
  Company Number: US-PFIZER INC-2011270802

PATIENT
  Sex: Male
  Weight: 76.19 kg

DRUGS (1)
  1. ADVIL PM [Suspect]
     Indication: HEADACHE
     Dosage: 200/38 MG, AS NEEDED
     Route: 048
     Dates: start: 20111101, end: 20111103

REACTIONS (1)
  - HEADACHE [None]
